FAERS Safety Report 9271182 (Version 2)
Quarter: 2013Q2

REPORT INFORMATION
  Report Type: Report from Study
  Country: CL (occurrence: CL)
  Receive Date: 20130506
  Receipt Date: 20130515
  Transmission Date: 20140414
  Serious: Yes (Other)
  Sender: FDA-Public Use
  Company Number: PHHY2013CL043919

PATIENT
  Age: 89 Year
  Sex: Female

DRUGS (3)
  1. TAREG D [Suspect]
     Indication: HYPERTENSION
     Dosage: 1 DF, (160/12,5MG) ONCE A DAY
     Route: 048
  2. AMLODIPINE [Concomitant]
     Indication: HYPERTENSION
     Dosage: UNK UKN, UNK
  3. EBIXA [Concomitant]
     Indication: MEMORY IMPAIRMENT
     Dosage: 1 DF, DAILY

REACTIONS (2)
  - Dementia Alzheimer^s type [Unknown]
  - Senile dementia [Unknown]
